FAERS Safety Report 9057263 (Version 1)
Quarter: 2013Q1

REPORT INFORMATION
  Report Type: Report from Study
  Country: JP (occurrence: JP)
  Receive Date: 20130131
  Receipt Date: 20130131
  Transmission Date: 20140127
  Serious: Yes (Other)
  Sender: FDA-Public Use
  Company Number: JP-GLAXOSMITHKLINE-B0860282A

PATIENT
  Age: 55 None
  Sex: Female
  Weight: 50 kg

DRUGS (7)
  1. TYKERB [Suspect]
     Indication: BREAST CANCER
     Route: 048
     Dates: start: 20100310, end: 20100713
  2. XELODA [Concomitant]
     Route: 048
     Dates: start: 20100310, end: 20100713
  3. OXYCONTIN [Concomitant]
     Indication: CANCER PAIN
     Route: 048
  4. MAGLAX [Concomitant]
     Indication: CONSTIPATION
     Route: 048
  5. MYSLEE [Concomitant]
     Indication: INSOMNIA
     Route: 048
  6. ACRINOL HYDRATE [Concomitant]
     Indication: POSTOPERATIVE WOUND INFECTION
     Route: 061
  7. GENTACIN [Concomitant]
     Indication: POSTOPERATIVE WOUND INFECTION
     Route: 061

REACTIONS (1)
  - Toxic skin eruption [Recovering/Resolving]
